FAERS Safety Report 25171507 (Version 1)
Quarter: 2025Q2

REPORT INFORMATION
  Report Type: Spontaneous
  Country: FR (occurrence: FR)
  Receive Date: 20250408
  Receipt Date: 20250408
  Transmission Date: 20250716
  Serious: Yes (Other)
  Sender: ABBVIE
  Company Number: None

PATIENT
  Age: 85 Year
  Sex: Female
  Weight: 59 kg

DRUGS (6)
  1. VENETOCLAX [Suspect]
     Active Substance: VENETOCLAX
     Indication: Lymphocytic leukaemia
     Dosage: 100 MG, COMPRIM? PELLICUL?
     Route: 048
     Dates: start: 20241121, end: 20241128
  2. VENETOCLAX [Suspect]
     Active Substance: VENETOCLAX
     Indication: Lymphocytic leukaemia
     Dosage: 100 MG, COMPRIM? PELLICUL?
     Route: 048
     Dates: start: 20240917, end: 20241120
  3. VENETOCLAX [Suspect]
     Active Substance: VENETOCLAX
     Indication: Lymphocytic leukaemia
     Dosage: 100 MG, COMPRIM? PELLICUL?
     Route: 048
     Dates: start: 20241214, end: 20250217
  4. VENETOCLAX [Suspect]
     Active Substance: VENETOCLAX
     Indication: Lymphocytic leukaemia
     Dosage: 100 MG, COMPRIM? PELLICUL?
     Route: 048
     Dates: start: 20250226
  5. VENETOCLAX [Suspect]
     Active Substance: VENETOCLAX
     Indication: Lymphocytic leukaemia
     Dosage: 100 MG, COMPRIM? PELLICUL?
     Route: 048
     Dates: start: 20241129, end: 20241213
  6. OBINUTUZUMAB [Suspect]
     Active Substance: OBINUTUZUMAB
     Indication: Lymphocytic leukaemia
     Route: 042
     Dates: start: 20240917

REACTIONS (2)
  - Agranulocytosis [Recovered/Resolved]
  - Peripheral sensory neuropathy [Not Recovered/Not Resolved]

NARRATIVE: CASE EVENT DATE: 20241005
